FAERS Safety Report 18224281 (Version 3)
Quarter: 2021Q1

REPORT INFORMATION
  Report Type: Spontaneous
  Country: US (occurrence: US)
  Receive Date: 20200902
  Receipt Date: 20210226
  Transmission Date: 20210419
  Serious: Yes (Hospitalization, Other)
  Sender: FDA-Public Use
  Company Number: US-THERATECHNOLOGIES EUROPE LIMITED-2020-THE-IBA-000199

PATIENT
  Age: 60 Year
  Sex: Female
  Weight: 75.9 kg

DRUGS (6)
  1. TIVICAY [Concomitant]
     Active Substance: DOLUTEGRAVIR SODIUM
     Indication: HIV INFECTION
     Dosage: UNK
     Route: 048
     Dates: start: 2017, end: 202011
  2. TROGARZO [Suspect]
     Active Substance: IBALIZUMAB-UIYK
     Indication: ACQUIRED IMMUNODEFICIENCY SYNDROME
     Dosage: 800 MG, EVERY 2 WEEKS
     Route: 042
     Dates: start: 20191011, end: 20210114
  3. TROGARZO [Suspect]
     Active Substance: IBALIZUMAB-UIYK
     Indication: HIV INFECTION
  4. ATOVAQUONE. [Concomitant]
     Active Substance: ATOVAQUONE
     Indication: ANTIFUNGAL PROPHYLAXIS
     Dosage: 1500 MG
     Dates: start: 2017
  5. BICTEGRAVIR;EMTRICITABINE;TENOFOVIR ALAFENAMI [Concomitant]
     Active Substance: BICTEGRAVIR\EMTRICITABINE\TENOFOVIR ALAFENAMIDE
     Indication: HIV INFECTION
     Dosage: UNK
     Route: 048
     Dates: start: 20201103
  6. ODEFSEY [Concomitant]
     Active Substance: EMTRICITABINE\RILPIVIRINE HYDROCHLORIDE\TENOFOVIR ALAFENAMIDE FUMARATE
     Indication: HIV INFECTION
     Dosage: UNK
     Route: 048
     Dates: start: 2017, end: 202011

REACTIONS (3)
  - Uterine cancer [Not Recovered/Not Resolved]
  - Product dose omission issue [Recovered/Resolved]
  - Salmonellosis [Recovered/Resolved]

NARRATIVE: CASE EVENT DATE: 202002
